FAERS Safety Report 6149476-2 (Version None)
Quarter: 2009Q2

REPORT INFORMATION
  Report Type: 
  Country: None (occurrence: None)
  Receive Date: 20090409
  Receipt Date: 20090316
  Transmission Date: 20091009
  Serious: Yes (Death, Other)
  Sender: FDA-Public Use
  Company Number: ES-CELGENEUS-144-C5013-07070612

PATIENT
  Sex: Male

DRUGS (1)
  1. CC-5013 [Suspect]
     Route: 048

REACTIONS (4)
  - MULTIPLE MYELOMA [None]
  - NO THERAPEUTIC RESPONSE [None]
  - RENAL FAILURE [None]
  - THROMBOCYTOPENIA [None]
